FAERS Safety Report 8777500 (Version 2)
Quarter: 2016Q2

REPORT INFORMATION
  Report Type: Spontaneous
  Country: US (occurrence: US)
  Receive Date: 20120911
  Receipt Date: 20160513
  Transmission Date: 20160815
  Serious: Yes (Hospitalization, Other)
  Sender: FDA-Public Use
  Company Number: US-JNJFOC-20120902448

PATIENT

DRUGS (6)
  1. GALANTAMINE HBR [Suspect]
     Active Substance: GALANTAMINE HYDROBROMIDE
     Indication: DEMENTIA
     Dosage: MEAN OR MAXIMUM DOSE OF 0.63 MG/KG (0.31-1.05 MG/KG)
     Route: 048
  2. RIVASTIGMINE. [Suspect]
     Active Substance: RIVASTIGMINE
     Indication: DEMENTIA
     Route: 062
  3. GALANTAMINE HBR [Suspect]
     Active Substance: GALANTAMINE HYDROBROMIDE
     Indication: DEMENTIA
     Route: 048
  4. DONEPEZIL. [Suspect]
     Active Substance: DONEPEZIL
     Indication: DEMENTIA
     Dosage: MEAN OR MAXIMUM DOSE OF 0.78 MG/KG (0.14-4.32 MG/KG)
     Route: 048
  5. MEMANTINE. [Suspect]
     Active Substance: MEMANTINE
     Indication: DEMENTIA
     Dosage: MEAN OR MAXIMUM DOSE OF 0.75 MG/KG (0.18-2.32 MG/KG)
     Route: 048
  6. RIVASTIGMINE. [Suspect]
     Active Substance: RIVASTIGMINE
     Indication: DEMENTIA
     Dosage: 0.73 MG/KG (0.27-1.17 MG/KG)
     Route: 048

REACTIONS (7)
  - Abdominal discomfort [Unknown]
  - Tachycardia [Unknown]
  - Accidental exposure to product [Unknown]
  - Depressed level of consciousness [Unknown]
  - Sedation [Unknown]
  - Hyperhidrosis [Unknown]
  - Drooling [Unknown]
